FAERS Safety Report 4679056-7 (Version None)
Quarter: 2005Q2

REPORT INFORMATION
  Report Type: 
  Country: None (occurrence: None)
  Receive Date: 20050527
  Receipt Date: 20050421
  Transmission Date: 20051028
  Serious: No
  Sender: FDA-Public Use
  Company Number: PHEH2005US04598

PATIENT
  Age: 61 Year
  Sex: Female

DRUGS (8)
  1. ZELNORM [Suspect]
     Indication: IRRITABLE BOWEL SYNDROME
     Dosage: 6 MG, QD, ORAL
     Route: 048
     Dates: start: 20040101
  2. TICLOPIDINE HCL [Concomitant]
  3. PREMARIN [Concomitant]
  4. DARVOCET-N 100 [Concomitant]
  5. DETROL - SLOW RELEASE (TOLTERODINE L-TARTRATE) [Concomitant]
  6. TAGAMET [Concomitant]
  7. MIRAPEX [Concomitant]
  8. VITAMIN B12 [Concomitant]

REACTIONS (2)
  - JAUNDICE [None]
  - OCULAR ICTERUS [None]
